FAERS Safety Report 10176107 (Version 3)
Quarter: 2017Q1

REPORT INFORMATION
  Report Type: Spontaneous
  Country: US (occurrence: US)
  Receive Date: 20140516
  Receipt Date: 20170221
  Transmission Date: 20170428
  Serious: No
  Sender: FDA-Public Use
  Company Number: US-PFIZER INC-2014131787

PATIENT
  Age: 68 Year
  Sex: Female
  Weight: 72.57 kg

DRUGS (5)
  1. VITAMIN B12 [Concomitant]
     Active Substance: CYANOCOBALAMIN
     Dosage: UNK UNK, DAILY
  2. LEVOTHYROXINE. [Concomitant]
     Active Substance: LEVOTHYROXINE
     Indication: HYPOTHYROIDISM
     Dosage: 50 UG, UNK
     Route: 048
  3. OCUVITE [Concomitant]
     Active Substance: VITAMINS
     Indication: VISUAL IMPAIRMENT
     Dosage: UNK UNK, DAILY
  4. ADDERALL [Concomitant]
     Active Substance: AMPHETAMINE ASPARTATE\AMPHETAMINE SULFATE\DEXTROAMPHETAMINE SACCHARATE\DEXTROAMPHETAMINE SULFATE
     Indication: ATTENTION DEFICIT/HYPERACTIVITY DISORDER
     Dosage: 30 MG, UNK
  5. TIKOSYN [Suspect]
     Active Substance: DOFETILIDE
     Indication: SURGERY
     Dosage: 125 UG, 2X/DAY
     Dates: start: 20140514

REACTIONS (3)
  - Alopecia [Not Recovered/Not Resolved]
  - Nasopharyngitis [Unknown]
  - Abdominal pain [Not Recovered/Not Resolved]
